FAERS Safety Report 5431007-3 (Version None)
Quarter: 2007Q3

REPORT INFORMATION
  Report Type: 
  Country: None (occurrence: None)
  Receive Date: 20070830
  Receipt Date: 20070823
  Transmission Date: 20080115
  Serious: Yes (Other)
  Sender: FDA-Public Use
  Company Number: B0485033A

PATIENT
  Age: 80 Year
  Sex: Male
  Weight: 71.5 kg

DRUGS (5)
  1. RANITIDINE [Suspect]
     Indication: DYSPEPSIA
     Route: 048
     Dates: start: 20060101, end: 20070601
  2. ASPIRIN [Concomitant]
     Route: 048
     Dates: start: 19960101
  3. ATENOLOL [Concomitant]
     Route: 048
     Dates: start: 20010101
  4. RAMIPRIL [Concomitant]
     Route: 048
     Dates: start: 20050101
  5. SIMVASTATIN [Concomitant]
     Route: 048
     Dates: start: 20040101

REACTIONS (1)
  - SUDDEN ONSET OF SLEEP [None]
